FAERS Safety Report 7245405-9 (Version None)
Quarter: 2011Q1

REPORT INFORMATION
  Report Type: 
  Country: None (occurrence: None)
  Receive Date: 20110126
  Receipt Date: 20110111
  Transmission Date: 20110831
  Serious: Yes (Hospitalization, Other)
  Sender: FDA-Public Use
  Company Number: FR-PFIZER INC-2006074642

PATIENT
  Age: 59 Year
  Sex: Male
  Weight: 120 kg

DRUGS (8)
  1. ALTEIS [Suspect]
     Indication: ESSENTIAL HYPERTENSION
     Dosage: 20 MG, 1X/DAY
     Route: 048
  2. NEULASTA [Suspect]
     Dosage: UNK
     Route: 058
     Dates: end: 20060218
  3. LOXEN [Suspect]
     Indication: ESSENTIAL HYPERTENSION
     Dosage: 50 MG, 2X/DAY
     Route: 048
  4. DOXORUBICIN HCL [Suspect]
     Route: 065
  5. ARANESP [Suspect]
     Dosage: UNK
     Route: 058
     Dates: end: 20060218
  6. CORTANCYL [Suspect]
     Route: 048
  7. ONCOVIN [Suspect]
     Route: 065
  8. CYCLOPHOSPHAMIDE [Suspect]
     Route: 065

REACTIONS (2)
  - ACUTE CORONARY SYNDROME [None]
  - ANAEMIA [None]
